FAERS Safety Report 14155398 (Version 1)
Quarter: 2017Q4

REPORT INFORMATION
  Report Type: Spontaneous
  Country: US (occurrence: US)
  Receive Date: 20171103
  Receipt Date: 20171103
  Transmission Date: 20180321
  Serious: Yes (Other)
  Sender: FDA-Public Use
  Company Number: US-BIOGEN-2017BI00479197

PATIENT
  Sex: Male

DRUGS (1)
  1. AVONEX [Suspect]
     Active Substance: INTERFERON BETA-1A
     Indication: MULTIPLE SCLEROSIS
     Route: 065
     Dates: start: 20011215

REACTIONS (7)
  - General symptom [Unknown]
  - Malaise [Unknown]
  - Seizure [Unknown]
  - Agraphia [Unknown]
  - Memory impairment [Unknown]
  - Speech disorder [Unknown]
  - Mental impairment [Unknown]
